FAERS Safety Report 8850909 (Version 1)
Quarter: 2012Q4

REPORT INFORMATION
  Report Type: 
  Country: US (occurrence: US)
  Receive Date: 20121019
  Receipt Date: 20121019
  Transmission Date: 20130627
  Serious: No
  Sender: FDA-Public Use
  Company Number: US-PFIZER INC-2012260758

PATIENT
  Age: 57 Year
  Sex: Male
  Weight: 92.97 kg

DRUGS (1)
  1. LIPITOR [Suspect]
     Indication: BLOOD CHOLESTEROL INCREASED
     Dosage: 20 mg, daily
     Dates: start: 2012, end: 20121010

REACTIONS (1)
  - Abdominal pain upper [Unknown]
